FAERS Safety Report 9388805 (Version 1)
Quarter: 2013Q3

REPORT INFORMATION
  Report Type: Spontaneous
  Country: GB (occurrence: GB)
  Receive Date: 20130708
  Receipt Date: 20130708
  Transmission Date: 20140515
  Serious: Yes (Hospitalization)
  Sender: FDA-Public Use
  Company Number: PHHY2013GB070562

PATIENT
  Age: 93 Year
  Sex: Female

DRUGS (4)
  1. DONEPEZIL [Suspect]
     Indication: DEMENTIA
     Dosage: 5 MG, UNK
     Route: 048
     Dates: start: 200802
  2. DONEPEZIL [Suspect]
     Dosage: 10 MG, UNK
     Route: 048
     Dates: start: 200804, end: 20130522
  3. BENDROFLUMETHIAZIDE [Concomitant]
     Indication: HYPERTENSION
     Dosage: 2.5 MG, UNK
     Route: 048
  4. SIMVASTATIN [Concomitant]
     Indication: HYPERCHOLESTEROLAEMIA
     Dosage: 40 MG, UNK
     Route: 048

REACTIONS (3)
  - Electrocardiogram QT prolonged [Recovered/Resolved]
  - Heart rate decreased [Recovered/Resolved]
  - Atrioventricular block first degree [Recovered/Resolved]
